FAERS Safety Report 17544533 (Version 1)
Quarter: 2020Q1

REPORT INFORMATION
  Report Type: Spontaneous
  Country: DE (occurrence: DE)
  Receive Date: 20200316
  Receipt Date: 20200316
  Transmission Date: 20200409
  Serious: Yes (Death)
  Sender: FDA-Public Use
  Company Number: DE-TORRENT-00016942

PATIENT
  Sex: Female

DRUGS (1)
  1. VENLAFAXIN HEUMANN 225 MG HARTKAPSELN, RETARDIERT [Suspect]
     Active Substance: VENLAFAXINE HYDROCHLORIDE
     Indication: DEPRESSION
     Dosage: LOT OF (DOSE UNKNOWN)?VENLAFAXINE 225 MG HEUMANN CAPSULES
     Dates: start: 2020

REACTIONS (2)
  - Intentional overdose [Fatal]
  - Completed suicide [Fatal]

NARRATIVE: CASE EVENT DATE: 2020
